FAERS Safety Report 14493097 (Version 1)
Quarter: 2018Q1

REPORT INFORMATION
  Report Type: Spontaneous
  Country: US (occurrence: US)
  Receive Date: 20180205
  Receipt Date: 20180205
  Transmission Date: 20180509
  Serious: Yes (Hospitalization, Disabling)
  Sender: FDA-Public Use
  Company Number: None

PATIENT
  Age: 15 Year
  Sex: Female
  Weight: 49.5 kg

DRUGS (4)
  1. DEPO-PROVERA [Suspect]
     Active Substance: MEDROXYPROGESTERONE ACETATE
     Indication: CONTRACEPTION
     Dates: start: 20170425, end: 20171001
  2. PROTONIX [Concomitant]
     Active Substance: PANTOPRAZOLE SODIUM
  3. SIMETHICONE (DIMETHICONE) [Concomitant]
     Active Substance: DIMETHICONE
  4. VITAMIN D [Concomitant]
     Active Substance: CHOLECALCIFEROL

REACTIONS (13)
  - Gastritis [None]
  - Oesophagitis [None]
  - Abdominal distension [None]
  - Colitis [None]
  - Paraesthesia [None]
  - Eructation [None]
  - Abdominal discomfort [None]
  - Dyspnoea [None]
  - Hypertension [None]
  - Laryngeal oedema [None]
  - Anxiety [None]
  - Fear [None]
  - Tachycardia [None]

NARRATIVE: CASE EVENT DATE: 20171013
